FAERS Safety Report 9268928 (Version 3)
Quarter: 2013Q2

REPORT INFORMATION
  Report Type: Report from Study
  Country: CA (occurrence: CA)
  Receive Date: 20130503
  Receipt Date: 20130619
  Transmission Date: 20140414
  Serious: Yes (Hospitalization, Other)
  Sender: FDA-Public Use
  Company Number: CA-ROCHE-1219711

PATIENT
  Age: 48 Year
  Sex: Female
  Weight: 65.8 kg

DRUGS (13)
  1. HERCEPTIN [Suspect]
     Indication: BREAST CANCER METASTATIC
     Route: 042
     Dates: start: 200902, end: 201004
  2. HERCEPTIN [Suspect]
     Route: 042
     Dates: start: 201111, end: 201303
  3. XELODA [Suspect]
     Indication: BREAST CANCER METASTATIC
     Route: 048
     Dates: start: 20130424
  4. XELODA [Suspect]
     Indication: METASTASES TO CENTRAL NERVOUS SYSTEM
  5. TYKERB [Suspect]
     Indication: BREAST CANCER METASTATIC
     Route: 065
     Dates: end: 20130531
  6. SYNTHROID [Concomitant]
  7. XGEVA [Concomitant]
     Route: 065
     Dates: start: 201203
  8. CORTISONE [Concomitant]
  9. TAMOXASTA [Concomitant]
  10. TAMOXIFEN [Concomitant]
     Route: 065
     Dates: start: 200906, end: 201006
  11. FEMARA [Concomitant]
     Route: 065
     Dates: start: 201008, end: 201111
  12. PAMIDRONATE [Concomitant]
     Route: 065
     Dates: start: 201111, end: 201202
  13. VINORELBINE [Concomitant]
     Route: 065
     Dates: start: 201111, end: 201203

REACTIONS (12)
  - Metastases to uterus [Unknown]
  - Vein disorder [Unknown]
  - Recurrent cancer [Not Recovered/Not Resolved]
  - Metastases to central nervous system [Not Recovered/Not Resolved]
  - Vaginal disorder [Unknown]
  - Asthenia [Not Recovered/Not Resolved]
  - Fatigue [Not Recovered/Not Resolved]
  - Back pain [Not Recovered/Not Resolved]
  - Diarrhoea [Recovering/Resolving]
  - Arthropod bite [Unknown]
  - Fatigue [Recovering/Resolving]
  - Decreased appetite [Recovering/Resolving]
